FAERS Safety Report 23041453 (Version 2)
Quarter: 2023Q4

REPORT INFORMATION
  Report Type: Spontaneous
  Country: JP (occurrence: JP)
  Receive Date: 20231007
  Receipt Date: 20231014
  Transmission Date: 20240110
  Serious: Yes (Other)
  Sender: FDA-Public Use
  Company Number: JP-AMGEN-JPNSP2023091855

PATIENT

DRUGS (3)
  1. BLINCYTO [Suspect]
     Active Substance: BLINATUMOMAB
     Indication: B precursor type acute leukaemia
     Dosage: UNK (DRIP INFUSION)
     Route: 042
     Dates: start: 20230407, end: 2023
  2. BLINCYTO [Suspect]
     Active Substance: BLINATUMOMAB
     Indication: Precursor T-lymphoblastic leukaemia acute
     Dosage: UNK (DRIP INFUSION)
     Route: 042
     Dates: start: 20230920, end: 202309
  3. BLINCYTO [Suspect]
     Active Substance: BLINATUMOMAB
     Dosage: UNK (DRIP INFUSION)
     Route: 042
     Dates: start: 202310

REACTIONS (4)
  - Immune effector cell-associated neurotoxicity syndrome [Recovered/Resolved]
  - Abnormal behaviour [Recovered/Resolved]
  - Nervous system disorder [Recovered/Resolved]
  - Speech disorder [Unknown]

NARRATIVE: CASE EVENT DATE: 20230401
